FAERS Safety Report 19397763 (Version 3)
Quarter: 2021Q2

REPORT INFORMATION
  Report Type: Spontaneous
  Country: CN (occurrence: CN)
  Receive Date: 20210610
  Receipt Date: 20210629
  Transmission Date: 20210717
  Serious: Yes (Hospitalization)
  Sender: FDA-Public Use
  Company Number: CN-REGENERON PHARMACEUTICALS, INC.-2021-56829

PATIENT

DRUGS (1)
  1. PRALUENT [Suspect]
     Active Substance: ALIROCUMAB
     Indication: LIPIDS INCREASED
     Dosage: UNK
     Route: 065
     Dates: start: 2020

REACTIONS (2)
  - Chest pain [Unknown]
  - Discomfort [Unknown]

NARRATIVE: CASE EVENT DATE: 2021
